FAERS Safety Report 15330350 (Version 2)
Quarter: 2018Q3

REPORT INFORMATION
  Report Type: Spontaneous
  Country: US (occurrence: US)
  Receive Date: 20180829
  Receipt Date: 20180905
  Transmission Date: 20181010
  Serious: No
  Sender: FDA-Public Use
  Company Number: US-SA-2018SA240229

PATIENT
  Age: 43 Year
  Sex: Female

DRUGS (3)
  1. KEVZARA [Suspect]
     Active Substance: SARILUMAB
     Dosage: 200 MG, QOW
     Route: 058
     Dates: start: 20180727
  2. CELEBREX [Concomitant]
     Active Substance: CELECOXIB
  3. PREDNISONE. [Concomitant]
     Active Substance: PREDNISONE

REACTIONS (7)
  - Arthralgia [Unknown]
  - Motor dysfunction [Unknown]
  - Loss of personal independence in daily activities [Unknown]
  - Injection site rash [Unknown]
  - Joint stiffness [Unknown]
  - Arthritis [Unknown]
  - Fatigue [Unknown]

NARRATIVE: CASE EVENT DATE: 20180821
